FAERS Safety Report 17793935 (Version 1)
Quarter: 2020Q2

REPORT INFORMATION
  Report Type: Spontaneous
  Country: NZ (occurrence: NZ)
  Receive Date: 20200515
  Receipt Date: 20200515
  Transmission Date: 20200714
  Serious: Yes (Other)
  Sender: FDA-Public Use
  Company Number: NZ-MEDEXUS PHARMA, INC.-2020MED00126

PATIENT
  Age: 24 Year
  Sex: Female

DRUGS (2)
  1. METHOTREXATE. [Suspect]
     Active Substance: METHOTREXATE
     Route: 048
  2. LAMOTRIGINE. [Concomitant]
     Active Substance: LAMOTRIGINE
     Route: 065

REACTIONS (6)
  - Agranulocytosis [Recovered/Resolved]
  - Staphylococcal bacteraemia [Unknown]
  - Mouth ulceration [Unknown]
  - Pancytopenia [Recovered/Resolved]
  - Febrile neutropenia [Recovering/Resolving]
  - Anaemia megaloblastic [Unknown]
